FAERS Safety Report 19654140 (Version 1)
Quarter: 2021Q3

REPORT INFORMATION
  Report Type: Other
  Country: SK (occurrence: SK)
  Receive Date: 20210803
  Receipt Date: 20210803
  Transmission Date: 20211014
  Serious: Yes (Other)
  Sender: FDA-Public Use
  Company Number: SK-ROCHE-2878446

PATIENT
  Age: 33 Year
  Sex: Female
  Weight: 88 kg

DRUGS (2)
  1. OCRELIZUMAB. [Suspect]
     Active Substance: OCRELIZUMAB
     Indication: PRIMARY PROGRESSIVE MULTIPLE SCLEROSIS
     Route: 042
     Dates: start: 20200928
  2. SUMAMED [Concomitant]
     Active Substance: AZITHROMYCIN ANHYDROUS
     Route: 048
     Dates: start: 202101, end: 202102

REACTIONS (1)
  - Borrelia infection [Recovered/Resolved]

NARRATIVE: CASE EVENT DATE: 202101
